FAERS Safety Report 19101201 (Version 1)
Quarter: 2021Q2

REPORT INFORMATION
  Report Type: Spontaneous
  Country: DE (occurrence: DE)
  Receive Date: 20210407
  Receipt Date: 20210407
  Transmission Date: 20210717
  Serious: Yes (Hospitalization)
  Sender: FDA-Public Use
  Company Number: NVSC2021DE073736

PATIENT
  Age: 70 Year
  Sex: Male

DRUGS (1)
  1. SOLARAZE [Suspect]
     Active Substance: DICLOFENAC SODIUM
     Indication: ACTINIC KERATOSIS
     Dosage: 1 UNK, QD
     Route: 061

REACTIONS (1)
  - Glomerulonephritis [Unknown]
